FAERS Safety Report 5389035-2 (Version None)
Quarter: 2007Q3

REPORT INFORMATION
  Report Type: 
  Country: None (occurrence: None)
  Receive Date: 20070713
  Receipt Date: 20070709
  Transmission Date: 20080115
  Serious: Yes (Death)
  Sender: FDA-Public Use
  Company Number: 070073

PATIENT
  Age: 61 Year
  Sex: Female

DRUGS (1)
  1. HALFLYTELY [Suspect]
     Indication: COLONOSCOPY
     Dates: start: 20070307

REACTIONS (2)
  - POST PROCEDURAL COMPLICATION [None]
  - SUDDEN UNEXPLAINED DEATH IN EPILEPSY [None]
